FAERS Safety Report 5215537-5 (Version None)
Quarter: 2007Q1

REPORT INFORMATION
  Report Type: 
  Country: None (occurrence: None)
  Receive Date: 20070117
  Receipt Date: 20061229
  Transmission Date: 20070707
  Serious: Yes (Death, Life-Threatening)
  Sender: FDA-Public Use
  Company Number: 8021044

PATIENT
  Age: 77 Year
  Sex: Female
  Weight: 65 kg

DRUGS (6)
  1. KEPPRA [Suspect]
     Indication: CONVULSION
     Dosage: 1 G IV
     Route: 042
     Dates: start: 20061201, end: 20061202
  2. PHENYTOIN [Suspect]
     Indication: STATUS EPILEPTICUS
     Dosage: 300 MG PO
     Route: 048
     Dates: start: 20061120, end: 20061202
  3. PHENYTOIN [Suspect]
     Indication: STATUS EPILEPTICUS
     Dosage: IV
     Route: 042
  4. ATACAND [Concomitant]
  5. BELOC ZOK [Concomitant]
  6. ARIMIDEX [Concomitant]

REACTIONS (7)
  - ALANINE AMINOTRANSFERASE INCREASED [None]
  - ANTICONVULSANT DRUG LEVEL INCREASED [None]
  - ASPARTATE AMINOTRANSFERASE INCREASED [None]
  - BILIRUBIN CONJUGATED INCREASED [None]
  - BLOOD LACTIC ACID INCREASED [None]
  - GAMMA-GLUTAMYLTRANSFERASE INCREASED [None]
  - ILEUS PARALYTIC [None]
